FAERS Safety Report 17577964 (Version 1)
Quarter: 2020Q1

REPORT INFORMATION
  Report Type: Spontaneous
  Country: US (occurrence: US)
  Receive Date: 20200324
  Receipt Date: 20200324
  Transmission Date: 20200409
  Serious: Yes (Hospitalization)
  Sender: FDA-Public Use
  Company Number: US-BAYER-2020-048368

PATIENT
  Age: 35 Year
  Sex: Female

DRUGS (1)
  1. ACETYLSALICYLIC ACID [Suspect]
     Active Substance: ASPIRIN

REACTIONS (5)
  - Contraindicated product administered [None]
  - Product use in unapproved indication [None]
  - Off label use [None]
  - Caesarean section [None]
  - Maternal exposure during pregnancy [None]
